FAERS Safety Report 25612882 (Version 3)
Quarter: 2025Q4

REPORT INFORMATION
  Report Type: Report from Study
  Country: US (occurrence: US)
  Receive Date: 20250728
  Receipt Date: 20251224
  Transmission Date: 20260118
  Serious: Yes (Hospitalization, Other)
  Sender: ABBVIE
  Company Number: US-ABBVIE-6386797

PATIENT
  Age: 55 Year
  Sex: Female

DRUGS (2)
  1. SKYRIZI [Suspect]
     Active Substance: RISANKIZUMAB-RZAA
     Indication: Psoriasis
     Dosage: TIME INTERVAL: TOTAL: FORM STRENGTH: 150MG/ML, AT WEEK 0
     Route: 058
     Dates: start: 20250318, end: 20250318
  2. SKYRIZI [Suspect]
     Active Substance: RISANKIZUMAB-RZAA
     Indication: Psoriatic arthropathy
     Dosage: TIME INTERVAL: TOTAL: FORM STRENGTH: 150MG/ML, AT WEEK 4
     Route: 058
     Dates: start: 20250415, end: 20250415

REACTIONS (9)
  - Mastitis [Recovered/Resolved]
  - Cellulitis [Unknown]
  - Gangrene [Unknown]
  - Hypothyroidism [Unknown]
  - Breast discharge [Unknown]
  - Pain [Unknown]
  - Breast cyst [Unknown]
  - Drug ineffective [Unknown]
  - Immunodeficiency [Unknown]

NARRATIVE: CASE EVENT DATE: 20250101
